FAERS Safety Report 10264903 (Version 2)
Quarter: 2014Q3

REPORT INFORMATION
  Report Type: Spontaneous
  Country: CN (occurrence: None)
  Receive Date: 20140624
  Receipt Date: 20140722
  Transmission Date: 20150326
  Serious: Yes (Hospitalization)
  Sender: FDA-Public Use
  Company Number: 2014AMD00012

PATIENT
  Age: 7 Year
  Sex: Female

DRUGS (1)
  1. ALBENDAZOLE [Suspect]
     Active Substance: ALBENDAZOLE
     Dosage: 2 TABLETS, ONCE, ORAL
     Route: 048
     Dates: start: 20140530, end: 20140530

REACTIONS (9)
  - Acute tonsillitis [None]
  - Heart injury [None]
  - Dermatitis atopic [None]
  - Pyrexia [None]
  - Otitis media acute [None]
  - Urticaria [None]
  - Drug hypersensitivity [None]
  - Metabolic acidosis [None]
  - Ear pain [None]

NARRATIVE: CASE EVENT DATE: 20140601
